FAERS Safety Report 9833828 (Version 1)
Quarter: 2014Q1

REPORT INFORMATION
  Report Type: Spontaneous
  Country: US (occurrence: US)
  Receive Date: 20140122
  Receipt Date: 20140122
  Transmission Date: 20141002
  Serious: No
  Sender: FDA-Public Use
  Company Number: US-BIOGENIDEC-2014BI004832

PATIENT
  Sex: Male

DRUGS (6)
  1. TECFIDERA [Suspect]
     Indication: MULTIPLE SCLEROSIS
     Route: 048
     Dates: start: 20131119
  2. DIOVAN HCT [Concomitant]
  3. LISINOPRIL [Concomitant]
  4. METFORMIN HCI [Concomitant]
  5. XANAX [Concomitant]
  6. ZANAFLEX [Concomitant]

REACTIONS (1)
  - Hyperglycaemia [Unknown]
